FAERS Safety Report 19634409 (Version 1)
Quarter: 2021Q3

REPORT INFORMATION
  Report Type: Other
  Country: US (occurrence: US)
  Receive Date: 20210730
  Receipt Date: 20210730
  Transmission Date: 20211014
  Serious: Yes (Other)
  Sender: FDA-Public Use
  Company Number: US-ROCHE-2878637

PATIENT
  Sex: Female

DRUGS (2)
  1. RITUXAN [Suspect]
     Active Substance: RITUXIMAB
     Indication: CONGENITAL NEUROPATHY
     Dosage: INFUSE 500MG INTRAVENOUSLY ON DAY(S) 1 AND DAY(S) 15 THEN 1000MG EVERY 6 MONTH(S)
     Route: 042
  2. RITUXAN [Suspect]
     Active Substance: RITUXIMAB
     Indication: MULTIPLE SCLEROSIS
     Dosage: INFUSE 500MG INTRAVENOUSLY ON DAY(S) 1 AND DAY(S) 15 THEN 1000MG EVERY 6 MONTH(S)
     Route: 042

REACTIONS (2)
  - Multiple sclerosis relapse [Unknown]
  - Off label use [Unknown]
